FAERS Safety Report 15710523 (Version 1)
Quarter: 2018Q4

REPORT INFORMATION
  Report Type: Spontaneous
  Country: EG (occurrence: EG)
  Receive Date: 20181211
  Receipt Date: 20181211
  Transmission Date: 20190205
  Serious: Yes (Death)
  Sender: FDA-Public Use
  Company Number: EG-JNJFOC-20181206247

PATIENT

DRUGS (1)
  1. IMBRUVICA [Suspect]
     Active Substance: IBRUTINIB
     Indication: WALDENSTROM^S MACROGLOBULINAEMIA
     Route: 048

REACTIONS (1)
  - Renal disorder [Fatal]
